FAERS Safety Report 23276355 (Version 1)
Quarter: 2023Q4

REPORT INFORMATION
  Report Type: Spontaneous
  Country: IT (occurrence: IT)
  Receive Date: 20231208
  Receipt Date: 20231208
  Transmission Date: 20240109
  Serious: Yes (Life-Threatening, Other)
  Sender: FDA-Public Use
  Company Number: None

PATIENT
  Age: 66 Year
  Sex: Male

DRUGS (6)
  1. CARBOPLATIN [Suspect]
     Active Substance: CARBOPLATIN
     Indication: Small cell lung cancer
     Dosage: 750 MG/DAY FOR A SINGLE DAY PER CYCLE, EVERY 21-28 DAYS
     Dates: start: 20230227, end: 20230321
  2. ETOPOSIDE [Suspect]
     Active Substance: ETOPOSIDE
     Indication: Small cell lung cancer
     Dosage: 190 MG/DAY FOR 3 CONSECUTIVE DAYS PER CYCLE, EVERY 21-28 DAYS
     Dates: start: 20230227, end: 20230323
  3. ATEZOLIZUMAB [Suspect]
     Active Substance: ATEZOLIZUMAB
     Indication: Small cell lung cancer
     Dosage: 1200 MG EVERY 21 DAYS
     Dates: start: 20230324, end: 20230324
  4. HUMALOG [Concomitant]
     Active Substance: INSULIN LISPRO
     Indication: Diabetes mellitus
     Dosage: ACCORDING TO GLYCEMIA 3 TIMES A DAY
     Dates: start: 20221222
  5. LANTUS [Concomitant]
     Active Substance: INSULIN GLARGINE
     Indication: Diabetes mellitus
     Dosage: ACCORDING TO GLYCEMIA 1 TIME A DAY, AT NIGHT
     Dates: start: 20221222
  6. MAGNESIUM [Concomitant]
     Active Substance: MAGNESIUM
     Indication: Magnesium deficiency
     Dosage: 1-2 SACHETS PER DAY
     Dates: start: 20230621

REACTIONS (3)
  - Autoimmune haemolytic anaemia [Not Recovered/Not Resolved]
  - Pneumonia [Recovered/Resolved]
  - Seborrhoeic dermatitis [Recovering/Resolving]

NARRATIVE: CASE EVENT DATE: 20230323
